FAERS Safety Report 14835725 (Version 1)
Quarter: 2018Q2

REPORT INFORMATION
  Report Type: Spontaneous
  Country: RS (occurrence: RS)
  Receive Date: 20180502
  Receipt Date: 20180502
  Transmission Date: 20180711
  Serious: Yes (Other)
  Sender: FDA-Public Use
  Company Number: RS-INGENUS PHARMACEUTICALS NJ, LLC-ING201804-000372

PATIENT
  Age: 27 Year
  Sex: Female

DRUGS (4)
  1. CARISOPRODOL, ASPIRIN AND CODEINE PHOSPHATE [Suspect]
     Active Substance: ASPIRIN\CARISOPRODOL\CODEINE PHOSPHATE
     Indication: TOOTHACHE
  2. NIMUSLIDE [Suspect]
     Active Substance: NIMESULIDE
     Indication: TOOTHACHE
  3. IBUPROFEN. [Suspect]
     Active Substance: IBUPROFEN
     Indication: TOOTHACHE
  4. PARACETAMOL [Suspect]
     Active Substance: ACETAMINOPHEN
     Indication: TOOTHACHE

REACTIONS (2)
  - Systemic mastocytosis [Unknown]
  - Pruritus [Unknown]
